FAERS Safety Report 7516494-9 (Version None)
Quarter: 2011Q2

REPORT INFORMATION
  Report Type: 
  Country: None (occurrence: None)
  Receive Date: 20110601
  Receipt Date: 20110517
  Transmission Date: 20111010
  Serious: Yes (Hospitalization)
  Sender: FDA-Public Use
  Company Number: A0907567A

PATIENT
  Age: 49 Year
  Sex: Male
  Weight: 139.1 kg

DRUGS (14)
  1. COZAAR [Concomitant]
  2. METFORMIN HCL [Concomitant]
  3. LIPITOR [Concomitant]
  4. TOPROL-XL [Concomitant]
  5. AVANDIA [Suspect]
     Dosage: 8MG PER DAY
     Route: 048
     Dates: start: 20000401, end: 20070101
  6. GLUCOPHAGE [Concomitant]
  7. VIAGRA [Concomitant]
  8. ACCUPRIL [Concomitant]
  9. GLIMEPIRIDE [Concomitant]
  10. ASPIRIN [Concomitant]
  11. COREG [Concomitant]
  12. PLAVIX [Concomitant]
  13. COZAAR [Concomitant]
  14. AMARYL [Concomitant]

REACTIONS (7)
  - BLINDNESS [None]
  - CEREBROVASCULAR ACCIDENT [None]
  - CORONARY ARTERY DISEASE [None]
  - RADIUS FRACTURE [None]
  - MYOCARDIAL INFARCTION [None]
  - ANGINA UNSTABLE [None]
  - AMNESIA [None]
